FAERS Safety Report 14597783 (Version 5)
Quarter: 2019Q1

REPORT INFORMATION
  Report Type: Spontaneous
  Country: US (occurrence: US)
  Receive Date: 20180305
  Receipt Date: 20190213
  Transmission Date: 20190417
  Serious: No
  Sender: FDA-Public Use
  Company Number: US-PFIZER INC-2018085607

PATIENT
  Age: 61 Year
  Sex: Female
  Weight: 72.57 kg

DRUGS (2)
  1. IBRANCE [Suspect]
     Active Substance: PALBOCICLIB
     Indication: BREAST CANCER METASTATIC
     Dosage: 1 DF, CYCLIC (ONE CAPSULE ONCE A DAY BY MOUTH IN THE EVENING FOR 21 DAYS THEN 7 DAYS OFF)
     Route: 048
     Dates: start: 20180102, end: 20190129
  2. LETROZOLE. [Concomitant]
     Active Substance: LETROZOLE
     Dosage: UNK
     Dates: end: 20190129

REACTIONS (2)
  - Neoplasm progression [Unknown]
  - Full blood count decreased [Unknown]
